FAERS Safety Report 9459822 (Version 2)
Quarter: 2013Q3

REPORT INFORMATION
  Report Type: Spontaneous
  Country: BR (occurrence: BR)
  Receive Date: 20130815
  Receipt Date: 20130822
  Transmission Date: 20140515
  Serious: Yes (Hospitalization, Other)
  Sender: FDA-Public Use
  Company Number: BR-PFIZER INC-2013234415

PATIENT
  Sex: Female
  Weight: 73 kg

DRUGS (4)
  1. OLMETEC [Suspect]
     Indication: HYPERTENSION
     Dosage: 1 TABLET OF 20 MG, DAILY
     Route: 048
     Dates: start: 2008, end: 201304
  2. NORVASC [Suspect]
     Indication: HYPERTENSION
     Dosage: 2 TABLETS OF 5 MG, DAILY
     Route: 048
     Dates: start: 201104
  3. DIAMICRON MR [Concomitant]
     Indication: DIABETES MELLITUS
     Dosage: 1 TABLET OR CAPSULE (UNSPECIFIED) OF 5 MG, DAILY (IN FAST)
     Dates: start: 2008
  4. PANTOPRAZOL [Concomitant]
     Indication: GASTRIC DISORDER
     Dosage: UNSPECIFIED DOSE, 2X/DAY (IN FAST AND AT NIGHT)
     Dates: start: 2008

REACTIONS (3)
  - Eyelid disorder [Unknown]
  - Drug ineffective [Unknown]
  - Blood pressure increased [Unknown]
